FAERS Safety Report 19059298 (Version 2)
Quarter: 2021Q2

REPORT INFORMATION
  Report Type: Report from Study
  Country: CA (occurrence: CA)
  Receive Date: 20210326
  Receipt Date: 20210430
  Transmission Date: 20210717
  Serious: No
  Sender: FDA-Public Use
  Company Number: CA-JNJFOC-20201124503

PATIENT
  Age: 9 Decade
  Sex: Male

DRUGS (2)
  1. STELARA [Suspect]
     Active Substance: USTEKINUMAB
     Indication: CROHN^S DISEASE
     Route: 058
     Dates: start: 20200414
  2. STELARA [Suspect]
     Active Substance: USTEKINUMAB

REACTIONS (5)
  - Product label issue [Unknown]
  - Product colour issue [Unknown]
  - Product dose omission issue [Unknown]
  - Visual impairment [Unknown]
  - Flatulence [Not Recovered/Not Resolved]
